FAERS Safety Report 7974714-0 (Version None)
Quarter: 2011Q4

REPORT INFORMATION
  Report Type: 
  Country: None (occurrence: None)
  Receive Date: 20111213
  Receipt Date: 20111206
  Transmission Date: 20120403
  Serious: Yes (Other)
  Sender: FDA-Public Use
  Company Number: PHEH2011US009428

PATIENT
  Sex: Female
  Weight: 62 kg

DRUGS (3)
  1. ACETAMINOPHEN [Concomitant]
  2. EXTAVIA [Suspect]
     Dosage: 0.3 MG, QOD
     Route: 058
     Dates: start: 20111026
  3. EXTAVIA [Suspect]
     Indication: MULTIPLE SCLEROSIS
     Dosage: 0.062 MG, QOD
     Route: 058

REACTIONS (8)
  - INJECTION SITE DISCOLOURATION [None]
  - MUSCULAR WEAKNESS [None]
  - GAIT DISTURBANCE [None]
  - PAIN [None]
  - INFLUENZA LIKE ILLNESS [None]
  - FEELING HOT [None]
  - HEADACHE [None]
  - CHILLS [None]
